FAERS Safety Report 13071589 (Version 13)
Quarter: 2018Q1

REPORT INFORMATION
  Report Type: Spontaneous
  Country: BR (occurrence: BR)
  Receive Date: 20161229
  Receipt Date: 20180308
  Transmission Date: 20180508
  Serious: Yes (Other)
  Sender: FDA-Public Use
  Company Number: BR-GLAXOSMITHKLINE-BR2015GSK134540

PATIENT
  Age: 36 Year
  Sex: Female
  Weight: 82 kg

DRUGS (9)
  1. AZATHIOPRINE. [Concomitant]
     Active Substance: AZATHIOPRINE
     Indication: PRODUCT USED FOR UNKNOWN INDICATION
     Dosage: UNK
  2. METICORTEN (PREDNISONE) [Concomitant]
     Dosage: 10 UNK, UNK
  3. METICORTEN (PREDNISONE) [Concomitant]
     Indication: PRODUCT USED FOR UNKNOWN INDICATION
     Dosage: 25 MG, UNK
  4. LEFLUNOMIDE. [Concomitant]
     Active Substance: LEFLUNOMIDE
     Indication: PRODUCT USED FOR UNKNOWN INDICATION
     Dosage: UNK
  5. LOSARTAN. [Concomitant]
     Active Substance: LOSARTAN
     Indication: PRODUCT USED FOR UNKNOWN INDICATION
     Dosage: 50 MG, BID
  6. PANTOGAR (AMINOBENZOIC ACID+CALCIUM PANTOTHENATE+CYSTEINE+KERATIN+SACC [Concomitant]
     Indication: PRODUCT USED FOR UNKNOWN INDICATION
     Dosage: UNK
  7. NATRILIX [Concomitant]
     Active Substance: INDAPAMIDE
     Indication: PRODUCT USED FOR UNKNOWN INDICATION
     Dosage: UNK
  8. BENLYSTA [Suspect]
     Active Substance: BELIMUMAB
     Indication: SYSTEMIC LUPUS ERYTHEMATOSUS
     Dosage: 830 MG, UNK
     Dates: start: 20150915
  9. FOSAMAX [Suspect]
     Active Substance: ALENDRONATE SODIUM
     Indication: PRODUCT USED FOR UNKNOWN INDICATION
     Dosage: 5600 IU, UNK

REACTIONS (26)
  - Malaise [Recovered/Resolved]
  - Weight fluctuation [Unknown]
  - Weight increased [Unknown]
  - Product use issue [Recovered/Resolved]
  - Drug dose omission [Recovered/Resolved]
  - Hepatitis [Recovered/Resolved]
  - Systemic lupus erythematosus [Unknown]
  - Sinusitis [Unknown]
  - Fall [Unknown]
  - Myalgia [Unknown]
  - Underdose [Unknown]
  - Heart rate increased [Recovered/Resolved]
  - Liver disorder [Recovered/Resolved]
  - Road traffic accident [Recovered/Resolved]
  - Off label use [Recovered/Resolved]
  - Circumstance or information capable of leading to medication error [Recovered/Resolved]
  - Blood pressure decreased [Recovered/Resolved]
  - Spinal fracture [Unknown]
  - Hypokinesia [Recovered/Resolved]
  - Weight decreased [Recovered/Resolved]
  - Nephritis [Not Recovered/Not Resolved]
  - Alopecia [Recovered/Resolved]
  - Arthralgia [Unknown]
  - Joint stiffness [Recovered/Resolved]
  - Asthenia [Recovered/Resolved]
  - Overdose [Unknown]

NARRATIVE: CASE EVENT DATE: 20150915
